FAERS Safety Report 10508175 (Version 2)
Quarter: 2015Q1

REPORT INFORMATION
  Report Type: Spontaneous
  Country: US (occurrence: US)
  Receive Date: 20141009
  Receipt Date: 20150212
  Transmission Date: 20150720
  Serious: Yes (Hospitalization, Other)
  Sender: FDA-Public Use
  Company Number: PHEH2014US019276

PATIENT
  Age: 70 Year
  Sex: Female

DRUGS (2)
  1. SANDOSTATIN LAR DEPOT [Suspect]
     Active Substance: OCTREOTIDE ACETATE
     Indication: ANAEMIA
     Dosage: 20 MG, QMO
     Route: 065
  2. SANDOSTATIN LAR DEPOT [Suspect]
     Active Substance: OCTREOTIDE ACETATE
     Dosage: UNK UKN, UNK

REACTIONS (29)
  - Chronic gastrointestinal bleeding [Unknown]
  - Diabetes mellitus [Unknown]
  - Regurgitation [Unknown]
  - Fatigue [Unknown]
  - Nausea [Unknown]
  - Angiodysplasia [Unknown]
  - Cardiovascular disorder [Unknown]
  - Abdominal pain [Unknown]
  - Gastritis [Unknown]
  - Full blood count decreased [Unknown]
  - Haematochezia [Unknown]
  - Melaena [Unknown]
  - Haematemesis [Unknown]
  - Angina pectoris [Unknown]
  - Arthralgia [Unknown]
  - Diarrhoea [Unknown]
  - Dyspnoea [Unknown]
  - Chest pain [Unknown]
  - Deafness [Unknown]
  - Tinnitus [Unknown]
  - Decreased appetite [Unknown]
  - Anxiety [Unknown]
  - Product use issue [Unknown]
  - Back pain [Unknown]
  - Hiatus hernia [Unknown]
  - Hot flush [Unknown]
  - Oropharyngeal pain [Unknown]
  - Pain in extremity [Unknown]
  - Flushing [Unknown]

NARRATIVE: CASE EVENT DATE: 201404
